FAERS Safety Report 6809601-4 (Version None)
Quarter: 2010Q2

REPORT INFORMATION
  Report Type: 
  Country: None (occurrence: None)
  Receive Date: 20100630
  Receipt Date: 20100621
  Transmission Date: 20101027
  Serious: Yes (Hospitalization)
  Sender: FDA-Public Use
  Company Number: AU-B.I. PHARMACEUTICALS,INC./RIDGEFIELD-2010-AU-00493AU

PATIENT
  Sex: Male
  Weight: 116 kg

DRUGS (5)
  1. MOBIC [Suspect]
     Indication: BACK PAIN
     Dosage: 15 MG
     Dates: start: 20100618, end: 20100618
  2. MICARDIS HCT [Suspect]
  3. CARTIA XT [Concomitant]
  4. ALENDRONATE [Concomitant]
  5. CITALOPRAM [Concomitant]

REACTIONS (2)
  - DYSARTHRIA [None]
  - GASTROINTESTINAL HAEMORRHAGE [None]
